FAERS Safety Report 21179356 (Version 1)
Quarter: 2022Q3

REPORT INFORMATION
  Report Type: Spontaneous
  Country: US (occurrence: None)
  Receive Date: 20220805
  Receipt Date: 20220805
  Transmission Date: 20221026
  Serious: Yes (Hospitalization)
  Sender: FDA-Public Use
  Company Number: None

PATIENT
  Age: 76 Year
  Sex: Male

DRUGS (2)
  1. APIXABAN [Suspect]
     Active Substance: APIXABAN
     Indication: Atrial fibrillation
     Dates: start: 20210812
  2. ASPIRIN [Suspect]
     Active Substance: ASPIRIN
     Dates: start: 20220725

REACTIONS (4)
  - Gastric haemorrhage [None]
  - Hypotension [None]
  - Somnolence [None]
  - Acute kidney injury [None]

NARRATIVE: CASE EVENT DATE: 20220730
